FAERS Safety Report 23462388 (Version 1)
Quarter: 2024Q1

REPORT INFORMATION
  Report Type: Report from Study
  Country: US (occurrence: None)
  Receive Date: 20240131
  Receipt Date: 20240131
  Transmission Date: 20240410
  Serious: Yes (Other)
  Sender: FDA-Public Use
  Company Number: 2024A022493

PATIENT
  Sex: Female

DRUGS (3)
  1. LYNPARZA [Suspect]
     Active Substance: OLAPARIB
     Indication: Breast mass
     Route: 048
     Dates: start: 202312
  2. LYNPARZA [Suspect]
     Active Substance: OLAPARIB
     Indication: Benign breast neoplasm
     Route: 048
     Dates: start: 202312
  3. LYNPARZA [Suspect]
     Active Substance: OLAPARIB
     Indication: Adenoma benign
     Route: 048
     Dates: start: 202312

REACTIONS (6)
  - Decreased activity [Unknown]
  - Fatigue [Unknown]
  - Pain [Unknown]
  - Hypoaesthesia [Unknown]
  - Paraesthesia [Unknown]
  - Discomfort [Unknown]
